FAERS Safety Report 6670619-6 (Version None)
Quarter: 2010Q2

REPORT INFORMATION
  Report Type: 
  Country: None (occurrence: None)
  Receive Date: 20100407
  Receipt Date: 20100406
  Transmission Date: 20101027
  Serious: Yes (Disabling)
  Sender: FDA-Public Use
  Company Number: DE-JNJFOC-20100305541

PATIENT
  Age: 61 Year
  Sex: Male

DRUGS (7)
  1. TAVANIC [Suspect]
     Indication: PROSTATITIS
     Route: 048
  2. BLOPRESS PLUS [Concomitant]
     Indication: HYPERTENSION
     Route: 065
  3. ALNA [Concomitant]
     Indication: BENIGN PROSTATIC HYPERPLASIA
     Route: 065
  4. TESTOVIRON-DEPOT [Concomitant]
     Indication: BLOOD TESTOSTERONE DECREASED
     Route: 065
  5. ASPIRIN [Concomitant]
     Route: 065
  6. CEFUROXIME [Concomitant]
     Route: 065
  7. INFLUENZA VACCINE [Concomitant]
     Route: 065

REACTIONS (3)
  - EPICONDYLITIS [None]
  - MUSCLE RUPTURE [None]
  - TENDON DISORDER [None]
